FAERS Safety Report 20331456 (Version 1)
Quarter: 2022Q1

REPORT INFORMATION
  Report Type: Spontaneous
  Country: GB (occurrence: GB)
  Receive Date: 20220113
  Receipt Date: 20220113
  Transmission Date: 20220424
  Serious: Yes (Death, Other)
  Sender: FDA-Public Use
  Company Number: GB-JNJFOC-20211150091

PATIENT
  Age: 85 Year
  Sex: Male

DRUGS (3)
  1. ABIRATERONE [Suspect]
     Active Substance: ABIRATERONE
     Indication: Prostate cancer
     Dosage: 500 X 2
     Route: 048
     Dates: start: 20211012, end: 20211123
  2. PREDNISOLONE [Concomitant]
     Active Substance: PREDNISOLONE
     Indication: Prostate cancer
     Dosage: 5MG X 2
     Route: 048
     Dates: start: 20211012, end: 20211207
  3. RAMIPRIL [Concomitant]
     Active Substance: RAMIPRIL
     Indication: Product used for unknown indication
     Route: 065

REACTIONS (5)
  - Death [Fatal]
  - Blood potassium decreased [Not Recovered/Not Resolved]
  - Oedema peripheral [Unknown]
  - White blood cell count increased [Unknown]
  - General physical health deterioration [Unknown]
